FAERS Safety Report 8431676 (Version 6)
Quarter: 2012Q4

REPORT INFORMATION
  Report Type: 
  Country: US (occurrence: US)
  Receive Date: 20120228
  Receipt Date: 20121022
  Transmission Date: 20130627
  Serious: Yes (Hospitalization, Other)
  Sender: FDA-Public Use
  Company Number: US-009507513-1202USA03888

PATIENT

DRUGS (10)
  1. FOSAMAX [Suspect]
     Indication: OSTEOPOROSIS
     Dosage: UNK
     Route: 048
     Dates: start: 1999, end: 201012
  2. FOSAMAX [Suspect]
     Indication: OSTEOPENIA
     Dosage: 10 mg, UNK
     Route: 048
     Dates: start: 20000406, end: 20010505
  3. FOSAMAX [Suspect]
     Dosage: 70 mg, UNK
     Route: 048
     Dates: start: 20011011, end: 20080108
  4. FOSAMAX [Suspect]
     Indication: OSTEOPOROSIS
     Dosage: 70 mg, UNK
     Route: 048
     Dates: start: 20080410, end: 20081003
  5. FOSAMAX [Suspect]
     Indication: OSTEOPENIA
  6. ALENDRONATE SODIUM [Suspect]
     Indication: OSTEOPOROSIS
     Dosage: 70 mg, UNK
     Route: 048
     Dates: start: 20081224, end: 20091203
  7. ALENDRONATE SODIUM [Suspect]
     Indication: OSTEOPENIA
  8. ALENDRONATE SODIUM [Suspect]
     Indication: OSTEOPOROSIS
     Dosage: 70 mg, UNK
     Route: 048
     Dates: start: 20100225, end: 20100826
  9. ALENDRONATE SODIUM [Suspect]
     Indication: OSTEOPENIA
  10. CENTRUM (MINERALS (UNSPECIFIED) (+) VITAMINS (UNSPECIFIED)) [Concomitant]
     Indication: PRODUCT USED FOR UNKNOWN INDICATION
     Dosage: 1 DF, qd
     Route: 048
     Dates: start: 1982

REACTIONS (34)
  - Femur fracture [Recovering/Resolving]
  - Low turnover osteopathy [Unknown]
  - Loose tooth [Recovered/Resolved]
  - Oedema peripheral [Unknown]
  - Pain in extremity [Unknown]
  - Depression [Unknown]
  - Anxiety [Unknown]
  - Pain [Unknown]
  - Fall [Unknown]
  - Hypokalaemia [Recovered/Resolved]
  - Azotaemia [Unknown]
  - Hyponatraemia [Recovering/Resolving]
  - Anaemia [Unknown]
  - Leukocytosis [Unknown]
  - Blood pressure increased [Unknown]
  - Pubis fracture [Recovering/Resolving]
  - Spinal osteoarthritis [Unknown]
  - Gastrooesophageal reflux disease [Unknown]
  - Uterine disorder [Unknown]
  - Appendix disorder [Unknown]
  - Musculoskeletal pain [Unknown]
  - Rotator cuff syndrome [Unknown]
  - Carotid artery stenosis [Unknown]
  - Sinusitis [Unknown]
  - Cardiac murmur [Unknown]
  - Mitral valve incompetence [Unknown]
  - Arthritis [Not Recovered/Not Resolved]
  - Scoliosis [Unknown]
  - Spinal osteoarthritis [Unknown]
  - Facet joint syndrome [Unknown]
  - Osteoarthritis [Unknown]
  - Tooth extraction [Recovered/Resolved]
  - Oral surgery [Recovered/Resolved]
  - Hypertension [Unknown]
